FAERS Safety Report 18905052 (Version 1)
Quarter: 2021Q1

REPORT INFORMATION
  Report Type: Spontaneous
  Country: US (occurrence: US)
  Receive Date: 20210217
  Receipt Date: 20210217
  Transmission Date: 20210420
  Serious: Yes (Other)
  Sender: FDA-Public Use
  Company Number: US-ASTRAZENECA-2021A059711

PATIENT
  Age: 24862 Day
  Sex: Male
  Weight: 131.5 kg

DRUGS (112)
  1. PREVACID [Suspect]
     Active Substance: LANSOPRAZOLE
     Indication: GASTROOESOPHAGEAL REFLUX DISEASE
     Route: 065
     Dates: start: 1997, end: 2006
  2. DULOXETINE. [Concomitant]
     Active Substance: DULOXETINE
     Indication: NEURALGIA
     Route: 065
     Dates: start: 2014
  3. GABAPENTIN. [Concomitant]
     Active Substance: GABAPENTIN
     Indication: NEUROPATHY PERIPHERAL
     Route: 065
     Dates: start: 2015
  4. NAPROXEN. [Concomitant]
     Active Substance: NAPROXEN
     Indication: PAIN
     Route: 065
  5. ASPIRIN. [Concomitant]
     Active Substance: ASPIRIN
     Indication: ANALGESIC THERAPY
     Route: 065
     Dates: start: 2019
  6. REQUIP [Concomitant]
     Active Substance: ROPINIROLE HYDROCHLORIDE
     Route: 065
  7. CARDURA [Concomitant]
     Active Substance: DOXAZOSIN MESYLATE
     Route: 065
  8. BENICAR [Concomitant]
     Active Substance: OLMESARTAN MEDOXOMIL
     Route: 065
  9. RITALIN [Concomitant]
     Active Substance: METHYLPHENIDATE HYDROCHLORIDE
     Route: 065
  10. XARELTO [Concomitant]
     Active Substance: RIVAROXABAN
     Route: 065
  11. FEBUXOSTAT. [Concomitant]
     Active Substance: FEBUXOSTAT
     Route: 065
  12. PROPOXYPHENE. [Concomitant]
     Active Substance: PROPOXYPHENE
     Route: 065
     Dates: start: 20060609
  13. ZOCOR [Concomitant]
     Active Substance: SIMVASTATIN
     Route: 065
     Dates: start: 20060622
  14. ZYRTEC [Concomitant]
     Active Substance: CETIRIZINE HYDROCHLORIDE
     Route: 065
     Dates: start: 20060718
  15. OMNICEF [Concomitant]
     Active Substance: CEFDINIR
     Route: 065
     Dates: start: 20070308
  16. DIAZEPAM. [Concomitant]
     Active Substance: DIAZEPAM
     Route: 065
     Dates: start: 20120822
  17. NEXIUM [Suspect]
     Active Substance: ESOMEPRAZOLE MAGNESIUM
     Indication: GASTROOESOPHAGEAL REFLUX DISEASE
     Route: 048
     Dates: start: 2001, end: 2006
  18. TYLENOL [Concomitant]
     Active Substance: ACETAMINOPHEN
     Indication: ANALGESIC THERAPY
     Route: 065
     Dates: start: 2017
  19. BACTROBAN [Concomitant]
     Active Substance: MUPIROCIN\MUPIROCIN CALCIUM
     Route: 065
     Dates: start: 20140326
  20. VITAMIN D3 [Concomitant]
     Active Substance: CHOLECALCIFEROL
     Route: 065
  21. HYTRIN [Concomitant]
     Active Substance: TERAZOSIN HYDROCHLORIDE
     Route: 065
  22. SAVAYSA [Concomitant]
     Active Substance: EDOXABAN TOSYLATE
     Route: 065
  23. DILANTIN [Concomitant]
     Active Substance: PHENYTOIN
     Route: 065
  24. GABITRIL [Concomitant]
     Active Substance: TIAGABINE HYDROCHLORIDE
     Route: 065
  25. ANZEMET [Concomitant]
     Active Substance: DOLASETRON MESYLATE
     Route: 065
  26. METHOTREXATE. [Concomitant]
     Active Substance: METHOTREXATE
     Route: 065
  27. FLUVOXAMINE [Concomitant]
     Active Substance: FLUVOXAMINE
     Route: 065
  28. ONDANSETRON [Concomitant]
     Active Substance: ONDANSETRON
     Route: 065
  29. MICROZIDE [Concomitant]
     Active Substance: HYDROCHLOROTHIAZIDE
     Route: 065
     Dates: start: 20170109
  30. LOMOTIL [Concomitant]
     Active Substance: ATROPINE SULFATE\DIPHENOXYLATE HYDROCHLORIDE
     Route: 065
     Dates: start: 20120904
  31. VITAMIN B12 [Concomitant]
     Active Substance: CYANOCOBALAMIN
     Route: 065
  32. STRATTERA [Concomitant]
     Active Substance: ATOMOXETINE HYDROCHLORIDE
     Route: 065
  33. ARIXTRA [Concomitant]
     Active Substance: FONDAPARINUX SODIUM
     Route: 065
  34. KEPPRA [Concomitant]
     Active Substance: LEVETIRACETAM
     Route: 065
  35. MYSOLINE [Concomitant]
     Active Substance: PRIMIDONE
     Route: 065
  36. NORPRAMIN [Concomitant]
     Active Substance: DESIPRAMINE HYDROCHLORIDE
     Route: 065
  37. REMERON [Concomitant]
     Active Substance: MIRTAZAPINE
     Route: 065
  38. EFFEXOR [Concomitant]
     Active Substance: VENLAFAXINE HYDROCHLORIDE
     Route: 065
  39. COLCHICINE. [Concomitant]
     Active Substance: COLCHICINE
     Route: 065
  40. LESINURAD [Concomitant]
     Active Substance: LESINURAD
     Route: 065
  41. LIDODERM [Concomitant]
     Active Substance: LIDOCAINE
     Route: 065
     Dates: start: 20060608
  42. OXYCODONE [Concomitant]
     Active Substance: OXYCODONE
     Indication: ANALGESIC THERAPY
     Route: 065
     Dates: start: 2013, end: 2015
  43. ULTRAM [Concomitant]
     Active Substance: TRAMADOL HYDROCHLORIDE
     Route: 065
  44. ATACAND [Concomitant]
     Active Substance: CANDESARTAN CILEXETIL
     Route: 065
  45. DEXEDRINE [Concomitant]
     Active Substance: DEXTROAMPHETAMINE SULFATE
     Route: 065
  46. ESLICARBAZEPINE [Concomitant]
     Active Substance: ESLICARBAZEPINE
     Route: 065
  47. ZARONTIN [Concomitant]
     Active Substance: ETHOSUXIMIDE
     Route: 065
  48. AMOXAPINE. [Concomitant]
     Active Substance: AMOXAPINE
     Route: 065
  49. SERZONE [Concomitant]
     Active Substance: NEFAZODONE HYDROCHLORIDE
     Route: 065
  50. VIVACTIL [Concomitant]
     Active Substance: PROTRIPTYLINE HYDROCHLORIDE
     Route: 065
  51. SERTRALINE [Concomitant]
     Active Substance: SERTRALINE HYDROCHLORIDE
     Route: 065
  52. NEXIUM [Suspect]
     Active Substance: ESOMEPRAZOLE MAGNESIUM
     Indication: GASTROOESOPHAGEAL REFLUX DISEASE
     Dosage: 20?40MG DAILY GENERIC
     Route: 065
     Dates: start: 2015, end: 2016
  53. PROTONIX [Suspect]
     Active Substance: PANTOPRAZOLE SODIUM
     Indication: GASTROOESOPHAGEAL REFLUX DISEASE
     Dosage: GENERIC
     Route: 065
     Dates: start: 20091007
  54. PROTONIX [Suspect]
     Active Substance: PANTOPRAZOLE SODIUM
     Indication: GASTROOESOPHAGEAL REFLUX DISEASE
     Route: 048
  55. FLOMAX [Concomitant]
     Active Substance: TAMSULOSIN HYDROCHLORIDE
     Indication: BLOOD PRESSURE MEASUREMENT
     Route: 065
     Dates: start: 2016
  56. MELATONIN [Concomitant]
     Active Substance: MELATONIN
     Indication: SLEEP DISORDER
     Route: 065
     Dates: start: 2017
  57. WELCHOL [Concomitant]
     Active Substance: COLESEVELAM HYDROCHLORIDE
     Route: 065
  58. CHOLESTYRAMINE. [Concomitant]
     Active Substance: CHOLESTYRAMINE
     Route: 065
  59. VIAGRA [Concomitant]
     Active Substance: SILDENAFIL CITRATE
     Route: 065
  60. TEVETEN [Concomitant]
     Active Substance: EPROSARTAN MESYLATE
     Route: 065
  61. ADDERALL [Concomitant]
     Active Substance: AMPHETAMINE ASPARTATE\AMPHETAMINE SULFATE\DEXTROAMPHETAMINE SACCHARATE\DEXTROAMPHETAMINE SULFATE
     Route: 065
  62. FOCALIN [Concomitant]
     Active Substance: DEXMETHYLPHENIDATE HYDROCHLORIDE
     Route: 065
  63. CARBAMAZEPINE. [Concomitant]
     Active Substance: CARBAMAZEPINE
     Route: 065
  64. EZOGABINE [Concomitant]
     Active Substance: EZOGABINE
     Route: 065
  65. VIMPAT [Concomitant]
     Active Substance: LACOSAMIDE
     Route: 065
  66. LEVOMILNACIPRAN [Concomitant]
     Active Substance: LEVOMILNACIPRAN
     Route: 065
  67. VORTIOXETINE. [Concomitant]
     Active Substance: VORTIOXETINE
     Route: 065
  68. PALONOSETRON. [Concomitant]
     Active Substance: PALONOSETRON HYDROCHLORIDE
     Route: 065
  69. DURAGESIC [Concomitant]
     Active Substance: FENTANYL
     Route: 065
     Dates: start: 20170109
  70. MOBIC [Concomitant]
     Active Substance: MELOXICAM
     Route: 065
     Dates: start: 20170109
  71. PRILOSEC [Suspect]
     Active Substance: OMEPRAZOLE MAGNESIUM
     Indication: GASTROOESOPHAGEAL REFLUX DISEASE
     Route: 048
  72. PROTONIX [Suspect]
     Active Substance: PANTOPRAZOLE SODIUM
     Indication: GASTROOESOPHAGEAL REFLUX DISEASE
     Dosage: GENERIC
     Route: 065
     Dates: start: 20091007
  73. HYDROMORPHONE [Concomitant]
     Active Substance: HYDROMORPHONE
     Indication: ANALGESIC THERAPY
     Route: 065
     Dates: start: 2012, end: 2016
  74. IBUPROFEN. [Concomitant]
     Active Substance: IBUPROFEN
     Dates: start: 20140815
  75. LYRICA [Concomitant]
     Active Substance: PREGABALIN
     Route: 065
  76. RAPAFLO [Concomitant]
     Active Substance: SILODOSIN
     Route: 065
  77. MICARDIS [Concomitant]
     Active Substance: TELMISARTAN
     Route: 065
  78. RANEXA [Concomitant]
     Active Substance: RANOLAZINE
     Route: 065
  79. TAMBOCOR [Concomitant]
     Active Substance: FLECAINIDE ACETATE
     Route: 065
  80. MEXITIL [Concomitant]
     Active Substance: MEXILETINE HYDROCHLORIDE
     Route: 065
  81. RYTHMOL [Concomitant]
     Active Substance: PROPAFENONE HYDROCHLORIDE
     Route: 065
  82. PRADAXA [Concomitant]
     Active Substance: DABIGATRAN ETEXILATE MESYLATE
     Route: 065
  83. COUMADIN [Concomitant]
     Active Substance: WARFARIN SODIUM
     Route: 065
  84. FELBATOL [Concomitant]
     Active Substance: FELBAMATE
     Route: 065
  85. CEREBYX [Concomitant]
     Active Substance: FOSPHENYTOIN SODIUM
     Route: 065
  86. OXCARBAZEPINE. [Concomitant]
     Active Substance: OXCARBAZEPINE
     Route: 065
  87. TOPAMAX [Concomitant]
     Active Substance: TOPIRAMATE
     Route: 065
  88. RAZADYNE [Concomitant]
     Active Substance: GALANTAMINE HYDROBROMIDE
     Route: 065
  89. NAMENDA [Concomitant]
     Active Substance: MEMANTINE HYDROCHLORIDE
     Route: 065
  90. LUDIOMIL [Concomitant]
     Active Substance: MAPROTILINE HYDROCHLORIDE
     Route: 065
  91. PAMELOR [Concomitant]
     Active Substance: NORTRIPTYLINE HYDROCHLORIDE
     Route: 065
  92. VORICONAZOLE. [Concomitant]
     Active Substance: VORICONAZOLE
     Route: 065
  93. ADVAIR DISKUS [Concomitant]
     Active Substance: FLUTICASONE PROPIONATE\SALMETEROL XINAFOATE
     Route: 065
     Dates: start: 20090515
  94. EXALGO [Concomitant]
     Active Substance: HYDROMORPHONE HYDROCHLORIDE
     Route: 065
     Dates: start: 20110902
  95. NUCYNTA [Concomitant]
     Active Substance: TAPENTADOL HYDROCHLORIDE
     Indication: ANALGESIC THERAPY
     Route: 065
     Dates: start: 20160209, end: 2017
  96. MULTIVITAMIN [Concomitant]
     Active Substance: VITAMINS
     Indication: SUPPLEMENTATION THERAPY
     Route: 065
     Dates: start: 2010
  97. ARICEPT [Concomitant]
     Active Substance: DONEPEZIL HYDROCHLORIDE
     Route: 065
  98. AVODART [Concomitant]
     Active Substance: DUTASTERIDE
     Route: 065
  99. KAPVAY [Concomitant]
     Active Substance: CLONIDINE HYDROCHLORIDE
     Route: 065
  100. PERAMPANEL [Concomitant]
     Active Substance: PERAMPANEL
     Route: 065
  101. LUMINAL [Concomitant]
     Active Substance: PHENOBARBITAL SODIUM
     Route: 065
  102. METOCLOPRAMIDE. [Concomitant]
     Active Substance: METOCLOPRAMIDE
     Route: 065
  103. MEPERIDINE [Concomitant]
     Active Substance: MEPERIDINE
     Route: 065
     Dates: start: 20070101
  104. AMOXICILLIN. [Concomitant]
     Active Substance: AMOXICILLIN
     Route: 065
     Dates: start: 20070925
  105. VERSED [Concomitant]
     Active Substance: MIDAZOLAM HYDROCHLORIDE
     Route: 065
     Dates: start: 20170109
  106. PROTONIX [Suspect]
     Active Substance: PANTOPRAZOLE SODIUM
     Indication: GASTROOESOPHAGEAL REFLUX DISEASE
     Dosage: 1?2 TIMES A DAY
     Route: 065
     Dates: start: 20061012, end: 20170526
  107. FINASTERIDE. [Concomitant]
     Active Substance: FINASTERIDE
     Indication: ADVERSE EVENT
     Route: 065
     Dates: start: 2018
  108. VYTORIN [Concomitant]
     Active Substance: EZETIMIBE\SIMVASTATIN
     Route: 065
     Dates: start: 20111224
  109. UROXATRAL [Concomitant]
     Active Substance: ALFUZOSIN HYDROCHLORIDE
     Route: 065
  110. NALTREXONE [Concomitant]
     Active Substance: NALTREXONE
     Route: 065
  111. ZONEGRAN [Concomitant]
     Active Substance: ZONISAMIDE
     Route: 065
  112. RHINOCORT [Concomitant]
     Active Substance: BUDESONIDE
     Route: 065
     Dates: start: 20070315

REACTIONS (4)
  - Acute kidney injury [Not Recovered/Not Resolved]
  - Chronic kidney disease [Not Recovered/Not Resolved]
  - Renal failure [Unknown]
  - Gastrooesophageal reflux disease [Not Recovered/Not Resolved]

NARRATIVE: CASE EVENT DATE: 20160817
